FAERS Safety Report 9394012 (Version 2)
Quarter: 2013Q3

REPORT INFORMATION
  Report Type: Spontaneous
  Country: US (occurrence: US)
  Receive Date: 20130710
  Receipt Date: 20130812
  Transmission Date: 20140515
  Serious: No
  Sender: FDA-Public Use
  Company Number: US-ALLERGAN-1309786US

PATIENT
  Age: 9 Year
  Sex: Male
  Weight: 54.2 kg

DRUGS (2)
  1. REFRESH PLUS [Suspect]
     Indication: EYE IRRITATION
     Dosage: A FEW DROPS TO BOTH EYES AT 3 PM
     Route: 047
     Dates: start: 20130701, end: 20130701
  2. REFRESH PLUS [Suspect]
     Indication: EYE PRURITUS

REACTIONS (14)
  - Eye swelling [Recovered/Resolved]
  - Eyelid oedema [Recovered/Resolved]
  - Conjunctival oedema [Recovered/Resolved]
  - Eye pain [Recovered/Resolved]
  - Hypersensitivity [Recovered/Resolved]
  - Ocular discomfort [Recovered/Resolved]
  - Eye pruritus [Recovered/Resolved]
  - Conjunctival hyperaemia [Recovered/Resolved]
  - Ocular discomfort [Recovering/Resolving]
  - Eye irritation [Recovered/Resolved]
  - Eye irritation [Recovered/Resolved]
  - Scleral hyperaemia [Not Recovered/Not Resolved]
  - Scleral discolouration [Recovered/Resolved]
  - Ocular hyperaemia [Recovered/Resolved with Sequelae]
